APPROVED DRUG PRODUCT: NALOXONE HYDROCHLORIDE
Active Ingredient: NALOXONE HYDROCHLORIDE
Strength: 0.4MG/ML
Dosage Form/Route: INJECTABLE;INJECTION
Application: A214785 | Product #001 | TE Code: AP
Applicant: BAXTER HEALTHCARE CORP
Approved: Jan 29, 2021 | RLD: No | RS: No | Type: RX